FAERS Safety Report 16167905 (Version 1)
Quarter: 2019Q2

REPORT INFORMATION
  Report Type: Spontaneous
  Country: US (occurrence: US)
  Receive Date: 20190408
  Receipt Date: 20190408
  Transmission Date: 20190711
  Serious: No
  Sender: FDA-Public Use
  Company Number: US-ACLARIS THERAPEUTICS-2019US000224

PATIENT
  Age: 62 Year
  Sex: Male

DRUGS (3)
  1. ESKATA [Suspect]
     Active Substance: HYDROGEN PEROXIDE
     Indication: SEBORRHOEIC KERATOSIS
     Dosage: 1 DF, UNK
     Route: 061
     Dates: start: 20180803, end: 20180803
  2. ACETAMINOPHEN. [Concomitant]
     Active Substance: ACETAMINOPHEN
     Indication: PRODUCT USED FOR UNKNOWN INDICATION
     Dosage: UNK
  3. DICLOFENAC [Concomitant]
     Active Substance: DICLOFENAC
     Indication: PRODUCT USED FOR UNKNOWN INDICATION
     Dosage: UNK

REACTIONS (6)
  - Scar [Not Recovered/Not Resolved]
  - Skin lesion [Not Recovered/Not Resolved]
  - Tenderness [Not Recovered/Not Resolved]
  - Inflammation [Not Recovered/Not Resolved]
  - Ulcer [Not Recovered/Not Resolved]
  - Keloid scar [Not Recovered/Not Resolved]

NARRATIVE: CASE EVENT DATE: 201808
